FAERS Safety Report 4578161-3 (Version None)
Quarter: 2005Q1

REPORT INFORMATION
  Report Type: 
  Country: None (occurrence: None)
  Receive Date: 20050209
  Receipt Date: 20050126
  Transmission Date: 20050727
  Serious: Yes (Hospitalization)
  Sender: FDA-Public Use
  Company Number: 212138

PATIENT
  Age: 40 Year
  Sex: Female
  Weight: 63 kg

DRUGS (3)
  1. MABTHERA (RITUXIMAB) CONC FOR SOLUTION FOR INFUSION, 500 MG [Suspect]
     Indication: RHEUMATOID ARTHRITIS
     Dosage: 1 G, Q2W, INTRAVENOUS
     Route: 042
     Dates: start: 20040501, end: 20040525
  2. SULINDAC [Concomitant]
  3. METHOTREXATE [Concomitant]

REACTIONS (2)
  - NEPHROLITHIASIS [None]
  - RENAL COLIC [None]
